FAERS Safety Report 10974664 (Version 1)
Quarter: 2015Q1

REPORT INFORMATION
  Report Type: Spontaneous
  Country: US (occurrence: None)
  Receive Date: 20150226
  Receipt Date: 20150226
  Transmission Date: 20150721
  Serious: Yes (Hospitalization)
  Sender: FDA-Public Use
  Company Number: TPA2009A01228

PATIENT
  Age: 06 Decade
  Sex: Male

DRUGS (1)
  1. ULORIC [Suspect]
     Active Substance: FEBUXOSTAT
     Indication: GOUT
     Dates: start: 20090519, end: 20090526

REACTIONS (2)
  - Pneumonia [None]
  - Renal failure [None]

NARRATIVE: CASE EVENT DATE: 20090526
